FAERS Safety Report 21520259 (Version 1)
Quarter: 2022Q4

REPORT INFORMATION
  Report Type: Spontaneous
  Country: CN (occurrence: None)
  Receive Date: 20221028
  Receipt Date: 20221028
  Transmission Date: 20230112
  Serious: Yes (Other)
  Sender: FDA-Public Use
  Company Number: CN-ROCHE-3206037

PATIENT
  Age: 77 Year
  Sex: Female

DRUGS (5)
  1. GAZYVA [Suspect]
     Active Substance: OBINUTUZUMAB
     Indication: Diffuse large B-cell lymphoma
     Dosage: D1 28 DAYS A CYCLE
     Route: 042
     Dates: start: 20220716
  2. SELINEXOR [Concomitant]
     Active Substance: SELINEXOR
     Indication: Diffuse large B-cell lymphoma
     Dosage: ONCE A WEEK 28 DAYS A CYCLE
     Dates: start: 20220716
  3. LENALIDOMIDE [Concomitant]
     Active Substance: LENALIDOMIDE
     Indication: Diffuse large B-cell lymphoma
     Dosage: D1-D21 THREE CYCLES
     Route: 048
     Dates: start: 20210813
  4. LENALIDOMIDE [Concomitant]
     Active Substance: LENALIDOMIDE
     Dosage: 10MG A DAY
     Route: 048
     Dates: start: 202112
  5. LENALIDOMIDE [Concomitant]
     Active Substance: LENALIDOMIDE
     Dosage: 10MG A DAY MAINTENANCE
     Route: 048
     Dates: start: 20220324

REACTIONS (3)
  - Gastrointestinal disorder [Unknown]
  - Platelet count decreased [Unknown]
  - Off label use [Unknown]
